FAERS Safety Report 5515117-8 (Version None)
Quarter: 2007Q4

REPORT INFORMATION
  Report Type: 
  Country: None (occurrence: None)
  Receive Date: 20071113
  Receipt Date: 20070109
  Transmission Date: 20080405
  Serious: No
  Sender: FDA-Public Use
  Company Number: A0634947A

PATIENT
  Age: 84 Year
  Sex: Male

DRUGS (8)
  1. COREG [Suspect]
     Dosage: 1TAB TWICE PER DAY
     Route: 048
     Dates: start: 20061201
  2. FUROSEMIDE [Concomitant]
  3. GLIPIZIDE [Concomitant]
  4. POTASSIUM CHLORIDE [Concomitant]
  5. CO Q 10 [Concomitant]
  6. HYTRIN [Concomitant]
  7. ZOCOR [Concomitant]
  8. LANTUS [Concomitant]

REACTIONS (1)
  - DYSPNOEA [None]
